FAERS Safety Report 4416177-8 (Version None)
Quarter: 2004Q3

REPORT INFORMATION
  Report Type: 
  Country: None (occurrence: None)
  Receive Date: 20040803
  Receipt Date: 20040720
  Transmission Date: 20050211
  Serious: Yes (Death, Hospitalization)
  Sender: FDA-Public Use
  Company Number: US-JNJFOC-20040602657

PATIENT
  Age: 83 Year
  Sex: Female
  Weight: 49.8957 kg

DRUGS (8)
  1. DURAGESIC [Suspect]
     Indication: PAIN
     Dosage: 75 UG/HR, 1 IN 72 HOUR, TRANSDERMAL
     Route: 062
     Dates: end: 20040508
  2. PRINIVIL [Concomitant]
  3. TRENTAL (PENTROXIFYLLINE) [Concomitant]
  4. K-DUR 10 [Concomitant]
  5. ALBUTEROL [Concomitant]
  6. COLACE (DOCUSATE SODIUM) [Concomitant]
  7. DARVOCET-N (PROPACET) [Concomitant]
  8. RESTORIL [Concomitant]

REACTIONS (2)
  - BONE NEOPLASM MALIGNANT [None]
  - MALIGNANT NEOPLASM PROGRESSION [None]
